FAERS Safety Report 6649519-3 (Version None)
Quarter: 2010Q1

REPORT INFORMATION
  Report Type: 
  Country: None (occurrence: None)
  Receive Date: 20100319
  Receipt Date: 20100319
  Transmission Date: 20100710
  Serious: Yes (Death)
  Sender: FDA-Public Use
  Company Number: None

PATIENT
  Age: 90 Year
  Sex: Male

DRUGS (2)
  1. SODIUM IODIDE I-131 THERAPEUTIC NOT SPECIFIED NOT SPECIFIED [Suspect]
     Indication: GOITRE
     Dosage: NA
  2. SODIUM IODIDE I-131 THERAPEUTIC NOT SPECIFIED NOT SPECIFIED [Suspect]
     Indication: HYPERTHYROIDISM
     Dosage: NA

REACTIONS (6)
  - ABNORMAL LOSS OF WEIGHT [None]
  - DYSPHAGIA [None]
  - DYSPNOEA [None]
  - LOCAL SWELLING [None]
  - REFUSAL OF TREATMENT BY PATIENT [None]
  - THYROID CANCER [None]
